FAERS Safety Report 14669467 (Version 1)
Quarter: 2018Q1

REPORT INFORMATION
  Report Type: Report from Study
  Country: None (occurrence: GB)
  Receive Date: 20180322
  Receipt Date: 20180322
  Transmission Date: 20180509
  Serious: Yes (Hospitalization)
  Sender: FDA-Public Use
  Company Number: GB-ABBVIE-18K-167-2294136-00

PATIENT
  Age: 51 Year
  Sex: Female

DRUGS (1)
  1. HUMIRA [Suspect]
     Active Substance: ADALIMUMAB
     Indication: PSORIASIS
     Route: 058
     Dates: start: 20160314

REACTIONS (5)
  - Skin exfoliation [Unknown]
  - Skin discolouration [Unknown]
  - Rash pustular [Unknown]
  - Erythema [Unknown]
  - Skin fissures [Unknown]

NARRATIVE: CASE EVENT DATE: 201802
